FAERS Safety Report 9831785 (Version 1)
Quarter: 2014Q1

REPORT INFORMATION
  Report Type: Spontaneous
  Country: US (occurrence: US)
  Receive Date: 20140121
  Receipt Date: 20140121
  Transmission Date: 20141002
  Serious: No
  Sender: FDA-Public Use
  Company Number: US-PFIZER INC-2014012271

PATIENT
  Age: 61 Year
  Sex: Female

DRUGS (6)
  1. TETRACYCLINE HCL [Suspect]
     Dosage: UNK
  2. ERYTHROMYCIN [Suspect]
     Dosage: UNK
  3. TRIAMCINOLONE ACETONIDE [Suspect]
     Dosage: UNK
  4. ACHROMYCIN [Suspect]
     Dosage: UNK
  5. DARVOCET [Suspect]
     Dosage: UNK
  6. NORCO [Suspect]
     Dosage: UNK

REACTIONS (3)
  - Pruritus [Unknown]
  - Swelling [Unknown]
  - Drug hypersensitivity [Unknown]
